FAERS Safety Report 19010247 (Version 1)
Quarter: 2021Q1

REPORT INFORMATION
  Report Type: Report from Study
  Country: US (occurrence: US)
  Receive Date: 20210315
  Receipt Date: 20210315
  Transmission Date: 20210420
  Serious: Yes (Death)
  Sender: FDA-Public Use
  Company Number: US-PFIZER INC-2021264385

PATIENT

DRUGS (4)
  1. CYTARABINE. [Suspect]
     Active Substance: CYTARABINE
     Indication: CENTRAL NERVOUS SYSTEM LYMPHOMA
     Dosage: 400 MG/M2, DAILY, D?6 TO ?3, HIGH DOSE
     Route: 042
  2. ETOPOSIDE. [Suspect]
     Active Substance: ETOPOSIDE
     Indication: CENTRAL NERVOUS SYSTEM LYMPHOMA
     Dosage: 200 MG/M2, DAILY, D?6 TO ?3, HIGH DOSE
     Route: 042
  3. MELPHALAN. [Suspect]
     Active Substance: MELPHALAN
     Indication: CENTRAL NERVOUS SYSTEM LYMPHOMA
     Dosage: 140 MG/M2, CYCLIC, D ?2, HIGH DOSE
     Route: 042
  4. CARMUSTINE. [Suspect]
     Active Substance: CARMUSTINE
     Indication: CENTRAL NERVOUS SYSTEM LYMPHOMA
     Dosage: 300 MG/M2, CYCLIC,  D?7, HIGH DOSE
     Route: 042

REACTIONS (1)
  - Death [Fatal]
